FAERS Safety Report 7898012-9 (Version None)
Quarter: 2011Q4

REPORT INFORMATION
  Report Type: 
  Country: None (occurrence: None)
  Receive Date: 20111107
  Receipt Date: 20111107
  Transmission Date: 20120403
  Serious: Yes (Hospitalization)
  Sender: FDA-Public Use
  Company Number: None

PATIENT
  Age: 48 Year
  Sex: Female
  Weight: 77.11 kg

DRUGS (1)
  1. TAXOL [Suspect]
     Indication: BREAST CANCER STAGE III
     Dosage: UNKNOWN
     Route: 042
     Dates: start: 20111024, end: 20111024

REACTIONS (8)
  - MYALGIA [None]
  - ARTHRALGIA [None]
  - PARAESTHESIA [None]
  - HYPOAESTHESIA [None]
  - ABASIA [None]
  - MUSCULOSKELETAL STIFFNESS [None]
  - PRURITUS [None]
  - PYREXIA [None]
